FAERS Safety Report 15013988 (Version 2)
Quarter: 2018Q3

REPORT INFORMATION
  Report Type: Spontaneous
  Country: US (occurrence: US)
  Receive Date: 20180614
  Receipt Date: 20180910
  Transmission Date: 20181010
  Serious: Yes (Death, Other)
  Sender: FDA-Public Use
  Company Number: US-BRISTOL-MYERS SQUIBB COMPANY-BMS-2018-055465

PATIENT
  Sex: Female
  Weight: 46.72 kg

DRUGS (1)
  1. OPDIVO [Suspect]
     Active Substance: NIVOLUMAB
     Indication: OVARIAN CANCER RECURRENT
     Dosage: 146 MG, Q2WK
     Route: 042
     Dates: start: 201711, end: 201802

REACTIONS (2)
  - Death [Fatal]
  - Product use in unapproved indication [Unknown]
